FAERS Safety Report 16310964 (Version 2)
Quarter: 2019Q2

REPORT INFORMATION
  Report Type: Spontaneous
  Country: ES (occurrence: ES)
  Receive Date: 20190514
  Receipt Date: 20190607
  Transmission Date: 20190711
  Serious: Yes (Other)
  Sender: FDA-Public Use
  Company Number: ES-JNJFOC-20190516920

PATIENT
  Age: 45 Year
  Sex: Female

DRUGS (2)
  1. SIMPONI [Suspect]
     Active Substance: GOLIMUMAB
     Indication: ARTHRITIS
     Route: 058
     Dates: start: 20190222
  2. METHOTREXATE. [Concomitant]
     Active Substance: METHOTREXATE
     Dosage: METOTREXATO 12,5 MG INYECTABLE 0,25 ML PLUMA PRECARGADA
     Route: 065

REACTIONS (1)
  - Vertigo [Recovered/Resolved]

NARRATIVE: CASE EVENT DATE: 20190320
